FAERS Safety Report 6783361-8 (Version None)
Quarter: 2010Q2

REPORT INFORMATION
  Report Type: 
  Country: None (occurrence: None)
  Receive Date: 20100617
  Receipt Date: 20100601
  Transmission Date: 20101027
  Serious: Yes (Death, Hospitalization, Other)
  Sender: FDA-Public Use
  Company Number: 2010SCPR001157

PATIENT
  Age: 38 Year
  Sex: Female
  Weight: 45 kg

DRUGS (5)
  1. METRONIDAZOLE [Suspect]
     Indication: OSTEOMYELITIS
     Dosage: 1500 MG IV ADMINISTERED ONCE DAILY (OVER 90 MINUTES), INTRAVENOUS 500 MG, QID FOR 6 WEEKS, INTRAVENO
     Route: 042
  2. TEICOPLANIN (TEICOPLANIN) UNKNOWN [Suspect]
     Indication: INFECTION
     Dosage: 400 MG ONCE DAILY
  3. TRIMETHOPRIM + SULFAMETHOXAZOLE [Suspect]
     Indication: INFECTION
     Dosage: 480 MG, BID
  4. BACLOFEN [Suspect]
     Indication: PAIN
     Dosage: 25 MG, TID
  5. OMEPRAZOLE [Suspect]
     Indication: DYSPEPSIA
     Dosage: 20 MG ONCE DAILY

REACTIONS (2)
  - COMA [None]
  - TOXIC ENCEPHALOPATHY [None]
